FAERS Safety Report 6965540-X (Version None)
Quarter: 2010Q3

REPORT INFORMATION
  Report Type: 
  Country: None (occurrence: None)
  Receive Date: 20100903
  Receipt Date: 20100825
  Transmission Date: 20110219
  Serious: Yes (Hospitalization)
  Sender: FDA-Public Use
  Company Number: CO-JNJFOC-20100900021

PATIENT
  Age: 84 Year
  Sex: Female

DRUGS (2)
  1. RISPERDAL [Suspect]
     Indication: ABNORMAL BEHAVIOUR
     Route: 065
  2. QUETIAPINE [Concomitant]
     Indication: ABNORMAL BEHAVIOUR
     Route: 065

REACTIONS (2)
  - DEPRESSED LEVEL OF CONSCIOUSNESS [None]
  - SOMNOLENCE [None]
